FAERS Safety Report 9106158 (Version 1)
Quarter: 2013Q1

REPORT INFORMATION
  Report Type: Spontaneous
  Country: US (occurrence: US)
  Receive Date: 20130221
  Receipt Date: 20130221
  Transmission Date: 20140127
  Serious: No
  Sender: FDA-Public Use
  Company Number: US-ASTRAZENECA-2013SE11064

PATIENT
  Age: 47 Year
  Sex: Female
  Weight: 80.7 kg

DRUGS (1)
  1. NEXIUM [Suspect]
     Route: 048
     Dates: start: 20130206

REACTIONS (4)
  - Disease recurrence [Unknown]
  - Chest pain [Unknown]
  - Pain [Unknown]
  - Intentional drug misuse [Unknown]
